FAERS Safety Report 11423375 (Version 2)
Quarter: 2017Q1

REPORT INFORMATION
  Report Type: Report from Study
  Country: US (occurrence: US)
  Receive Date: 20150827
  Receipt Date: 20170222
  Transmission Date: 20170428
  Serious: No
  Sender: FDA-Public Use
  Company Number: PHEH2015US015363

PATIENT
  Sex: Male
  Weight: 61.68 kg

DRUGS (1)
  1. GILENYA [Suspect]
     Active Substance: FINGOLIMOD HYDROCHLORIDE
     Indication: MULTIPLE SCLEROSIS
     Dosage: 0.5 MG, QD
     Route: 048
     Dates: start: 20150216

REACTIONS (5)
  - Weight decreased [Unknown]
  - Chromaturia [Unknown]
  - Body height decreased [Unknown]
  - Memory impairment [Not Recovered/Not Resolved]
  - Hepatic enzyme increased [Unknown]
